FAERS Safety Report 6186795-8 (Version None)
Quarter: 2009Q2

REPORT INFORMATION
  Report Type: 
  Country: None (occurrence: None)
  Receive Date: 20090512
  Receipt Date: 20090417
  Transmission Date: 20091009
  Serious: Yes (Death, Other)
  Sender: FDA-Public Use
  Company Number: DE-CELGENEUS-062-CCAZA-09050214

PATIENT

DRUGS (1)
  1. AZACITIDINE [Suspect]
     Dosage: 75MG/M2/DAY
     Route: 058

REACTIONS (2)
  - CHIMERISM [None]
  - DEATH [None]
